FAERS Safety Report 20887977 (Version 1)
Quarter: 2022Q2

REPORT INFORMATION
  Report Type: Spontaneous
  Country: FR (occurrence: FR)
  Receive Date: 20220529
  Receipt Date: 20220529
  Transmission Date: 20220721
  Serious: Yes (Hospitalization, Other)
  Sender: FDA-Public Use
  Company Number: FR-AFSSAPS-GR20214397

PATIENT
  Age: 85 Year
  Sex: Female

DRUGS (3)
  1. LETROZOLE [Suspect]
     Active Substance: LETROZOLE
     Indication: Breast cancer
     Dosage: 2.5 MILLIGRAM (3 WEEKS/4)
     Route: 048
     Dates: start: 20210730
  2. COLCHICINE [Suspect]
     Active Substance: COLCHICINE
     Indication: Pericarditis
     Dosage: 0.5 MILLIGRAM
     Route: 048
     Dates: start: 20210721
  3. IBRANCE [Suspect]
     Active Substance: PALBOCICLIB
     Indication: Breast cancer
     Dosage: 125 MILLIGRAM (3 WEEKS/4)
     Route: 048
     Dates: start: 20210730

REACTIONS (1)
  - Pancytopenia [Recovering/Resolving]

NARRATIVE: CASE EVENT DATE: 20210827
